FAERS Safety Report 7123654-8 (Version None)
Quarter: 2010Q4

REPORT INFORMATION
  Report Type: 
  Country: None (occurrence: None)
  Receive Date: 20101125
  Receipt Date: 20101119
  Transmission Date: 20110411
  Serious: Yes (Hospitalization)
  Sender: FDA-Public Use
  Company Number: FR-PFIZER INC-2010152869

PATIENT
  Age: 63 Year
  Sex: Female

DRUGS (16)
  1. FARMORUBICINE [Suspect]
     Indication: BREAST CANCER
     Dosage: 184 MG, 1X/DAY
     Route: 042
     Dates: start: 20100101, end: 20100101
  2. TAXOTERE [Suspect]
     Indication: BREAST CANCER
     Dosage: 178 MG, 1X/DAY
     Route: 042
     Dates: start: 20100101, end: 20100101
  3. ZOPHREN [Suspect]
     Indication: BREAST CANCER
     Dosage: 8 MG, 1X/DAY
     Route: 042
     Dates: start: 20100101, end: 20100101
  4. ENDOXAN [Suspect]
     Indication: BREAST CANCER
     Dosage: 920 MG, 1X/DAY
     Route: 042
     Dates: start: 20100101, end: 20100101
  5. FLUOROURACIL [Suspect]
     Indication: BREAST CANCER
     Dosage: 920 MG, 1X/DAY
     Route: 042
     Dates: start: 20100101, end: 20100101
  6. ALPRAZOLAM [Concomitant]
  7. ALDACTONE [Concomitant]
  8. FUROSEMIDE [Concomitant]
  9. SIMVASTATIN [Concomitant]
  10. ALLOPURINOL [Concomitant]
  11. COLCHIMAX [Concomitant]
  12. DEROXAT [Concomitant]
  13. LEVOTHYROXINE SODIUM [Concomitant]
  14. INIPOMP [Concomitant]
  15. NOCTAMID [Concomitant]
  16. DUPHALAC [Concomitant]

REACTIONS (3)
  - ALOPECIA [None]
  - MADAROSIS [None]
  - TOXIC SKIN ERUPTION [None]
